FAERS Safety Report 23132066 (Version 1)
Quarter: 2023Q4

REPORT INFORMATION
  Report Type: Spontaneous
  Country: US (occurrence: US)
  Receive Date: 20231101
  Receipt Date: 20231101
  Transmission Date: 20240110
  Serious: No
  Sender: FDA-Public Use
  Company Number: US-drreddys-SPO/USA/23/0178640

PATIENT
  Age: 59 Year
  Sex: Female

DRUGS (1)
  1. NICOTINE [Suspect]
     Active Substance: NICOTINE
     Indication: Tobacco user
     Route: 062
     Dates: start: 20230926

REACTIONS (5)
  - Fatigue [Unknown]
  - Dry mouth [Unknown]
  - Nervousness [Unknown]
  - Dizziness [Unknown]
  - Nausea [Unknown]
